FAERS Safety Report 25167923 (Version 4)
Quarter: 2025Q2

REPORT INFORMATION
  Report Type: Spontaneous
  Country: US (occurrence: US)
  Receive Date: 20250407
  Receipt Date: 20250514
  Transmission Date: 20250717
  Serious: No
  Sender: PFIZER
  Company Number: US-PFIZER INC-202500070325

PATIENT
  Age: 13 Year
  Sex: Male

DRUGS (3)
  1. GENOTROPIN [Suspect]
     Active Substance: SOMATROPIN
  2. GENOTROPIN [Suspect]
     Active Substance: SOMATROPIN
  3. GENOTROPIN [Suspect]
     Active Substance: SOMATROPIN

REACTIONS (5)
  - Drug dose omission by device [Unknown]
  - Poor quality device used [Unknown]
  - Device leakage [Unknown]
  - Device issue [Unknown]
  - Off label use [Unknown]
